FAERS Safety Report 5648650-9 (Version None)
Quarter: 2008Q1

REPORT INFORMATION
  Report Type: 
  Country: None (occurrence: None)
  Receive Date: 20080304
  Receipt Date: 20080226
  Transmission Date: 20080703
  Serious: Yes (Hospitalization)
  Sender: FDA-Public Use
  Company Number: A0711949A

PATIENT
  Age: 74 Year
  Sex: Female

DRUGS (3)
  1. COREG CR [Suspect]
     Indication: HYPERTENSION
     Dosage: 10MG PER DAY
     Route: 048
     Dates: start: 20070701
  2. UNKNOWN MEDICATION [Suspect]
  3. SKELAXIN [Concomitant]

REACTIONS (8)
  - DRUG INEFFECTIVE [None]
  - DYSGEUSIA [None]
  - HYPERSENSITIVITY [None]
  - LOCAL SWELLING [None]
  - MYALGIA [None]
  - PAIN [None]
  - SWELLING FACE [None]
  - SYNCOPE [None]
